FAERS Safety Report 12638623 (Version 3)
Quarter: 2016Q3

REPORT INFORMATION
  Report Type: Spontaneous
  Country: US (occurrence: US)
  Receive Date: 20160809
  Receipt Date: 20160907
  Transmission Date: 20161109
  Serious: Yes (Hospitalization)
  Sender: FDA-Public Use
  Company Number: US-JNJFOC-20160801034

PATIENT

DRUGS (2)
  1. EVITHROM [Suspect]
     Active Substance: THROMBIN HUMAN
     Indication: HAEMOSTASIS
     Route: 061
     Dates: start: 20160728, end: 20160728
  2. LOCAL HEMOSTATICS [Concomitant]
     Indication: HAEMOSTASIS
     Route: 061
     Dates: start: 20160728, end: 20160728

REACTIONS (3)
  - Haemorrhage [Unknown]
  - Pyrexia [Unknown]
  - White blood cell count increased [Unknown]
